FAERS Safety Report 6950099-3 (Version None)
Quarter: 2010Q3

REPORT INFORMATION
  Report Type: 
  Country: None (occurrence: None)
  Receive Date: 20100828
  Receipt Date: 20100323
  Transmission Date: 20110219
  Serious: No
  Sender: FDA-Public Use
  Company Number: US-ABBOTT-09P-163-0614926-00

PATIENT
  Sex: Male
  Weight: 90.8 kg

DRUGS (18)
  1. NIASPAN [Suspect]
     Indication: BLOOD CHOLESTEROL ABNORMAL
     Dates: start: 20091201
  2. NIASPAN [Suspect]
  3. ASPIRIN [Concomitant]
     Indication: PRODUCT USED FOR UNKNOWN INDICATION
  4. ASPIRIN [Concomitant]
  5. PRAVASTATIN [Concomitant]
     Indication: PRODUCT USED FOR UNKNOWN INDICATION
  6. COQ10 [Concomitant]
     Indication: PRODUCT USED FOR UNKNOWN INDICATION
  7. FISH OIL [Concomitant]
     Indication: PRODUCT USED FOR UNKNOWN INDICATION
  8. GRAPE SEED OIL (EXTRACT) [Concomitant]
     Indication: PRODUCT USED FOR UNKNOWN INDICATION
  9. WALNUTS [Concomitant]
     Indication: PRODUCT USED FOR UNKNOWN INDICATION
  10. ALMONDS [Concomitant]
     Indication: PRODUCT USED FOR UNKNOWN INDICATION
  11. GLUCOSAMINE + CHONDROITIN [Concomitant]
     Indication: PRODUCT USED FOR UNKNOWN INDICATION
     Dosage: 1500/1200
  12. COLLEGEN 2 [Concomitant]
     Indication: PRODUCT USED FOR UNKNOWN INDICATION
  13. NAPROSYN [Concomitant]
     Indication: PRODUCT USED FOR UNKNOWN INDICATION
  14. CALCIUM W/VITAMIN D [Concomitant]
     Indication: PRODUCT USED FOR UNKNOWN INDICATION
  15. FLOMAX [Concomitant]
     Indication: PRODUCT USED FOR UNKNOWN INDICATION
  16. MULTI-VITAMIN [Concomitant]
     Indication: PRODUCT USED FOR UNKNOWN INDICATION
  17. UNKNOWN ALLERGY MEDICATION OTC [Concomitant]
     Indication: PRODUCT USED FOR UNKNOWN INDICATION
  18. SETELAPRAM [Concomitant]
     Indication: MOOD ALTERED

REACTIONS (3)
  - FLUSHING [None]
  - INSOMNIA [None]
  - MUSCULOSKELETAL PAIN [None]
